FAERS Safety Report 20905319 (Version 1)
Quarter: 2022Q2

REPORT INFORMATION
  Report Type: Spontaneous
  Country: DE (occurrence: DE)
  Receive Date: 20220602
  Receipt Date: 20220602
  Transmission Date: 20220721
  Serious: Yes (Hospitalization)
  Sender: FDA-Public Use
  Company Number: DE-DCGMA-21193541

PATIENT
  Age: 19 Year
  Sex: Male
  Weight: 85 kg

DRUGS (1)
  1. TERBINAFINE [Suspect]
     Active Substance: TERBINAFINE
     Indication: Tinea pedis
     Dosage: 250 MILLIGRAM (1/2 TGL.)
     Route: 048

REACTIONS (1)
  - Abscess sweat gland [Not Recovered/Not Resolved]

NARRATIVE: CASE EVENT DATE: 20210728
